FAERS Safety Report 22248555 (Version 2)
Quarter: 2024Q2

REPORT INFORMATION
  Report Type: Other
  Country: GB (occurrence: None)
  Receive Date: 20230425
  Receipt Date: 20240416
  Transmission Date: 20240716
  Serious: No
  Sender: FDA-Public Use
  Company Number: GB-ROCHE-3334761

PATIENT
  Age: 31 Year
  Sex: Female

DRUGS (2)
  1. OCREVUS [Suspect]
     Active Substance: OCRELIZUMAB
     Indication: Relapsing-remitting multiple sclerosis
     Dosage: 6 MONTHLY ;ONGOING: YES
     Route: 041
  2. OCREVUS [Suspect]
     Active Substance: OCRELIZUMAB
     Indication: Primary progressive multiple sclerosis

REACTIONS (6)
  - Throat irritation [Recovered/Resolved]
  - COVID-19 [Unknown]
  - Dysarthria [Unknown]
  - Fatigue [Unknown]
  - Gait disturbance [Unknown]
  - Cough [Recovered/Resolved]

NARRATIVE: CASE EVENT DATE: 20230417
